FAERS Safety Report 9774402 (Version 1)
Quarter: 2013Q4

REPORT INFORMATION
  Report Type: Spontaneous
  Country: IT (occurrence: IT)
  Receive Date: 20131220
  Receipt Date: 20131220
  Transmission Date: 20140711
  Serious: Yes (Hospitalization)
  Sender: FDA-Public Use
  Company Number: IT-BAYER-2013-152115

PATIENT
  Age: 70 Year
  Sex: Male

DRUGS (3)
  1. CIPROXIN 500 MG FILM-COATED TABLETS [Suspect]
     Indication: POLLAKIURIA
     Dosage: 500 MG, BID
     Route: 048
     Dates: start: 20131118, end: 20131118
  2. CIPROXIN 500 MG FILM-COATED TABLETS [Suspect]
     Indication: POLLAKIURIA
     Dosage: 500 MG, QD
     Route: 048
     Dates: start: 20131119, end: 20131120
  3. OMNIC [Concomitant]
     Indication: POLLAKIURIA
     Dosage: UNK
     Dates: start: 201311

REACTIONS (5)
  - Cardiac arrest [Not Recovered/Not Resolved]
  - Brain injury [Not Recovered/Not Resolved]
  - Malaise [None]
  - Pain in extremity [None]
  - Musculoskeletal stiffness [None]
